FAERS Safety Report 4321711-2 (Version None)
Quarter: 2004Q1

REPORT INFORMATION
  Report Type: 
  Country: None (occurrence: None)
  Receive Date: 20040322
  Receipt Date: 20031028
  Transmission Date: 20041129
  Serious: No
  Sender: FDA-Public Use
  Company Number: US-BRISTOL-MYERS SQUIBB COMPANY-12432779

PATIENT
  Age: 62 Year
  Sex: Female
  Weight: 91 kg

DRUGS (2)
  1. VAGISTAT-1 [Suspect]
     Indication: VAGINAL BURNING SENSATION
     Route: 067
     Dates: start: 20031016, end: 20031016
  2. VAGISTAT-1 [Suspect]
     Indication: GENITAL PRURITUS FEMALE
     Route: 067
     Dates: start: 20031016, end: 20031016

REACTIONS (5)
  - DRUG INEFFECTIVE [None]
  - GENITAL PRURITUS FEMALE [None]
  - VAGINAL BURNING SENSATION [None]
  - VAGINAL ERYTHEMA [None]
  - VULVOVAGINAL DISCOMFORT [None]
